APPROVED DRUG PRODUCT: RASAGILINE MESYLATE
Active Ingredient: RASAGILINE MESYLATE
Strength: EQ 1MG BASE
Dosage Form/Route: TABLET;ORAL
Application: A201892 | Product #002 | TE Code: AB
Applicant: CHARTWELL RX SCIENCES LLC
Approved: Jul 27, 2018 | RLD: No | RS: No | Type: RX